FAERS Safety Report 5093291-8 (Version None)
Quarter: 2006Q3

REPORT INFORMATION
  Report Type: 
  Country: None (occurrence: None)
  Receive Date: 20060829
  Receipt Date: 20060829
  Transmission Date: 20061208
  Serious: Yes (Other)
  Sender: FDA-Public Use
  Company Number: None

PATIENT
  Age: 69 Year
  Sex: Male
  Weight: 96.6 kg

DRUGS (9)
  1. ZOCOR [Suspect]
  2. OMEPRAZOLE [Concomitant]
  3. METOPROLOL TARTRATE [Concomitant]
  4. FLUTICAS 250/SALMETROL [Concomitant]
  5. HC 1%/NEOMYCIN 3.5 MG/POLMYXIN OTIC SUSP [Concomitant]
  6. NIACIN (NIASPAN-KOS) [Concomitant]
  7. ALBUTEROL ORAL INH [Concomitant]
  8. FLUNISOLIDE NASAL INH [Concomitant]
  9. FLUVASTATIN NA [Concomitant]

REACTIONS (1)
  - MYALGIA [None]
